FAERS Safety Report 9989196 (Version 1)
Quarter: 2013Q4

REPORT INFORMATION
  Report Type: Spontaneous
  Country: US (occurrence: None)
  Receive Date: 20131023
  Receipt Date: 20131023
  Transmission Date: 20140711
  Serious: Yes (Hospitalization)
  Sender: FDA-Public Use
  Company Number: 1947984

PATIENT
  Age: 61 Year
  Sex: Female
  Weight: 138.64 kg

DRUGS (16)
  1. LIDOCAINE HCL [Suspect]
     Indication: JOINT INJECTION
     Route: 014
     Dates: start: 20130905, end: 20130905
  2. TRIAMCINOLONE DIACETATE [Suspect]
     Indication: JOINT INJECTION
     Route: 014
     Dates: start: 20130905, end: 20130905
  3. BETADINE [Concomitant]
  4. ALCOHOL [Concomitant]
  5. LASIX /00032601/ [Concomitant]
  6. LEVOTHYROXINE [Concomitant]
  7. RANITIDINE [Concomitant]
  8. VITAMIN D [Concomitant]
  9. LOPID [Concomitant]
  10. SIMVASTATIN [Concomitant]
  11. AMLODIPINE [Concomitant]
  12. LOSARTAN [Concomitant]
  13. IRON [Concomitant]
  14. GABAPENTIN [Concomitant]
  15. LEVEMIR [Concomitant]
  16. HUMALOG [Concomitant]

REACTIONS (1)
  - Arthritis bacterial [None]
